FAERS Safety Report 5237796-5 (Version None)
Quarter: 2007Q1

REPORT INFORMATION
  Report Type: 
  Country: None (occurrence: None)
  Receive Date: 20070214
  Receipt Date: 20070202
  Transmission Date: 20070707
  Serious: Yes (Hospitalization, Other)
  Sender: FDA-Public Use
  Company Number: CHWYE500002FEB07

PATIENT
  Age: 82 Year
  Sex: Female
  Weight: 41 kg

DRUGS (4)
  1. EFFEXOR [Suspect]
     Route: 048
     Dates: start: 20061017
  2. ASPIRIN [Interacting]
     Route: 048
     Dates: start: 20060904
  3. VITARUBIN [Concomitant]
     Route: 058
     Dates: start: 20060906
  4. CLEXANE [Interacting]
     Route: 058
     Dates: start: 20060904, end: 20061028

REACTIONS (3)
  - DRUG INTERACTION [None]
  - INJECTION SITE HAEMATOMA [None]
  - INJECTION SITE INDURATION [None]
